FAERS Safety Report 23628442 (Version 2)
Quarter: 2024Q2

REPORT INFORMATION
  Report Type: Spontaneous
  Country: US (occurrence: US)
  Receive Date: 20240313
  Receipt Date: 20240408
  Transmission Date: 20240716
  Serious: No
  Sender: FDA-Public Use
  Company Number: US-SA-2023SA389976

PATIENT
  Age: 68 Year
  Sex: Female

DRUGS (3)
  1. DUPIXENT [Suspect]
     Active Substance: DUPILUMAB
     Indication: Neurodermatitis
     Dosage: 300 MG, QOW
     Route: 058
  2. CORDRAN [Concomitant]
     Active Substance: FLURANDRENOLIDE
     Indication: Pruritus
  3. GABAPENTIN [Concomitant]
     Active Substance: GABAPENTIN
     Indication: Pruritus

REACTIONS (3)
  - Pruritus [Not Recovered/Not Resolved]
  - Neurodermatitis [Unknown]
  - Drug ineffective [Unknown]
